FAERS Safety Report 9212811 (Version 1)
Quarter: 2013Q1

REPORT INFORMATION
  Report Type: Spontaneous
  Country: US (occurrence: None)
  Receive Date: 20120820
  Receipt Date: 20120820
  Transmission Date: 20140127
  Serious: No
  Sender: FDA-Public Use
  Company Number: 1000031394

PATIENT
  Age: 32 Year
  Sex: Male

DRUGS (1)
  1. VIIBRYD [Suspect]
     Dosage: 10 MG 1 IN 1 D
     Route: 048
     Dates: start: 2012, end: 2012

REACTIONS (4)
  - Nausea [None]
  - Headache [None]
  - Dizziness [None]
  - Dyspnoea [None]
